FAERS Safety Report 17339962 (Version 2)
Quarter: 2020Q2

REPORT INFORMATION
  Report Type: Spontaneous
  Country: US (occurrence: US)
  Receive Date: 20200129
  Receipt Date: 20200527
  Transmission Date: 20200713
  Serious: Yes (Other)
  Sender: FDA-Public Use
  Company Number: US-JNJFOC-20200130122

PATIENT
  Age: 84 Year
  Sex: Male

DRUGS (9)
  1. LISINOPRIL. [Concomitant]
     Active Substance: LISINOPRIL
     Indication: BLOOD PRESSURE MEASUREMENT
     Dates: start: 2015
  2. HYDROCODEINE [Concomitant]
     Active Substance: DIHYDROCODEINE PHOSPHATE
     Indication: PAIN
     Dates: start: 2018
  3. LUPRON DEPOT [Concomitant]
     Active Substance: LEUPROLIDE ACETATE
  4. ZYTIGA [Suspect]
     Active Substance: ABIRATERONE ACETATE
     Indication: PROSTATE CANCER METASTATIC
     Dosage: 4 TABLETS OF 250 MG
     Route: 048
     Dates: start: 201910, end: 20200218
  5. HYDROCHLOROTHIAZIDE. [Concomitant]
     Active Substance: HYDROCHLOROTHIAZIDE
     Indication: BLOOD PRESSURE MEASUREMENT
  6. ZYTIGA [Suspect]
     Active Substance: ABIRATERONE ACETATE
     Dosage: 4 TABLETS OF 250 MG
     Route: 048
     Dates: start: 202003
  7. PREDNISONE. [Concomitant]
     Active Substance: PREDNISONE
     Indication: PROSTATE CANCER METASTATIC
  8. ACETAMINOPHEN. [Concomitant]
     Active Substance: ACETAMINOPHEN
     Indication: PAIN
     Route: 065
     Dates: start: 2018
  9. VITAMINS                           /00067501/ [Concomitant]
     Active Substance: VITAMINS

REACTIONS (3)
  - Anaemia [Recovered/Resolved]
  - Blood potassium decreased [Recovered/Resolved]
  - Cough [Unknown]

NARRATIVE: CASE EVENT DATE: 201911
